FAERS Safety Report 8472790-2 (Version None)
Quarter: 2012Q2

REPORT INFORMATION
  Report Type: 
  Country: None (occurrence: None)
  Receive Date: 20120627
  Receipt Date: 20120611
  Transmission Date: 20120825
  Serious: No
  Sender: FDA-Public Use
  Company Number: US-ASTRAZENECA-2012SE39022

PATIENT

DRUGS (1)
  1. SYMBICORT [Suspect]
     Route: 055

REACTIONS (1)
  - PARKINSON'S DISEASE [None]
